FAERS Safety Report 5335927-X (Version None)
Quarter: 2007Q2

REPORT INFORMATION
  Report Type: 
  Country: None (occurrence: None)
  Receive Date: 20070301
  Receipt Date: 20061122
  Transmission Date: 20071010
  Serious: Yes (Other)
  Sender: FDA-Public Use
  Company Number: 150304USA

PATIENT
  Age: 73 Year
  Sex: Male

DRUGS (9)
  1. AZILECT [Suspect]
     Indication: PARKINSON'S DISEASE
     Dosage: 0.5 MG (0.5 MG, 1 IN 1 D), ORAL
     Route: 048
     Dates: start: 20061107, end: 20061112
  2. VENLAFAXINE HCL [Suspect]
     Dosage: 150 MG (150 MG, 1 IN 1 D), ORAL
     Route: 048
  3. LEVODOPA [Concomitant]
  4. DIAZEPAM [Concomitant]
  5. DILTIAZEM [Concomitant]
  6. TRAZODONE HCL [Concomitant]
  7. WARFARIN SODIUM [Concomitant]
  8. METOPROLOL SUCCINATE [Concomitant]
  9. MIRTAZAPINE [Concomitant]

REACTIONS (6)
  - AGITATION [None]
  - COLD SWEAT [None]
  - CONFUSIONAL STATE [None]
  - DRUG INTERACTION [None]
  - MUSCLE RIGIDITY [None]
  - SEROTONIN SYNDROME [None]
